FAERS Safety Report 7713329-6 (Version None)
Quarter: 2011Q3

REPORT INFORMATION
  Report Type: 
  Country: None (occurrence: None)
  Receive Date: 20110826
  Receipt Date: 20110822
  Transmission Date: 20111222
  Serious: Yes (Other)
  Sender: FDA-Public Use
  Company Number: CHPA2011US11287

PATIENT
  Age: 70 Year
  Sex: Male

DRUGS (4)
  1. ZANTAC [Concomitant]
     Indication: GASTROINTESTINAL DISORDER
     Dosage: 300 MG, BID
  2. BENEFIBER W/ WHEAT DEXTRIN [Suspect]
     Indication: CONSTIPATION
     Dosage: 2 TSP, TID
     Route: 048
  3. BENEFIBER W/ WHEAT DEXTRIN [Suspect]
     Dosage: UNK, UNK
     Route: 048
  4. BENEFIBER W/ WHEAT DEXTRIN [Suspect]
     Dosage: 2 TSP, QD
     Route: 048

REACTIONS (5)
  - RASH GENERALISED [None]
  - DRUG INEFFECTIVE FOR UNAPPROVED INDICATION [None]
  - URTICARIA [None]
  - RASH ERYTHEMATOUS [None]
  - OEDEMA PERIPHERAL [None]
